FAERS Safety Report 7162129-7 (Version None)
Quarter: 2010Q4

REPORT INFORMATION
  Report Type: 
  Country: None (occurrence: None)
  Receive Date: 20101215
  Receipt Date: 20090817
  Transmission Date: 20110411
  Serious: Yes (Hospitalization)
  Sender: FDA-Public Use
  Company Number: JP-PFIZER INC-2009246156

PATIENT
  Age: 77 Year

DRUGS (16)
  1. PREGABALIN [Suspect]
     Indication: DIABETIC NEUROPATHY
     Dosage: 300 MG, 2X/DAY
     Route: 048
     Dates: start: 20080807, end: 20090709
  2. PREGABALIN [Suspect]
     Dosage: 75 MG, 2X/DAY
     Route: 048
     Dates: start: 20080710, end: 20080717
  3. PREGABALIN [Suspect]
     Dosage: 150 MG, 2X/DAY
     Route: 048
     Dates: start: 20080717, end: 20080724
  4. PREGABALIN [Suspect]
     Dosage: 225 MG, 2X/DAY
     Route: 048
     Dates: start: 20080724, end: 20080807
  5. PREGABALIN [Suspect]
     Dosage: 225 MG, 2X/DAY
     Route: 048
     Dates: start: 20090709, end: 20090711
  6. PREGABALIN [Suspect]
     Dosage: 150 MG, 2X/DAY
     Route: 048
     Dates: start: 20090711, end: 20090713
  7. PREGABALIN [Suspect]
     Dosage: 75 MG, 2X/DAY
     Dates: start: 20090713, end: 20090715
  8. GLYBURIDE [Concomitant]
     Indication: DIABETES MELLITUS
     Dosage: UNK
     Route: 048
     Dates: start: 19991005
  9. ACECOL [Concomitant]
     Indication: HYPERTENSION
     Dosage: UNK
     Route: 048
     Dates: start: 20000711
  10. ACTOS [Concomitant]
     Indication: DIABETES MELLITUS
     Dosage: UNK
     Route: 048
     Dates: start: 20030318
  11. DIOVANE [Concomitant]
     Indication: HYPERTENSION
     Dosage: UNK
     Route: 048
     Dates: start: 20040217
  12. LANDEL [Concomitant]
     Indication: HYPERTENSION
     Dosage: UNK
     Route: 048
     Dates: start: 20031028
  13. CARDENALIN [Concomitant]
     Indication: HYPERTENSION
     Dosage: UNK
     Route: 048
     Dates: start: 20080314
  14. FELBINAC [Concomitant]
     Indication: BACK PAIN
     Dosage: UNK
     Route: 062
     Dates: start: 20080930
  15. OXYBUPROCAINE HYDROCHLORIDE [Concomitant]
     Indication: LACRIMATION INCREASED
     Dosage: UNK
     Route: 047
     Dates: start: 20090319
  16. MYDRIN P [Concomitant]
     Route: 047
     Dates: start: 20090717, end: 20090717

REACTIONS (1)
  - LIPOMA [None]
